FAERS Safety Report 18838036 (Version 1)
Quarter: 2021Q1

REPORT INFORMATION
  Report Type: Spontaneous
  Country: US (occurrence: US)
  Receive Date: 20210203
  Receipt Date: 20210203
  Transmission Date: 20210419
  Serious: No
  Sender: FDA-Public Use
  Company Number: US-ALLERGAN-2022143US

PATIENT
  Age: 4 Decade
  Sex: Female

DRUGS (1)
  1. BOTOX COSMETIC [Suspect]
     Active Substance: ONABOTULINUMTOXINA
     Indication: SKIN WRINKLING
     Dosage: 7?8 UNITS, SINGLE
     Dates: start: 20200529, end: 20200529

REACTIONS (2)
  - Tension headache [Recovered/Resolved]
  - Dizziness [Recovered/Resolved]
